FAERS Safety Report 9363489 (Version 1)
Quarter: 2013Q2

REPORT INFORMATION
  Report Type: Spontaneous
  Country: None (occurrence: None)
  Receive Date: 20130618
  Receipt Date: 20130618
  Transmission Date: 20140414
  Serious: Yes (Other)
  Sender: FDA-Public Use
  Company Number: DKLU1091717

PATIENT
  Sex: 0

DRUGS (4)
  1. COSMEGEN [Suspect]
     Indication: GESTATIONAL TROPHOBLASTIC TUMOUR
     Dosage: 0.5 MG MILLIGRAM(S), DAY 8 - EVERY 14 DAYS, INTRAVENOUS (NOT OTHERWISE SPECIFIED)
     Route: 042
  2. ETOPOSIDE [Suspect]
     Indication: GESTATIONAL TROPHOBLASTIC TUMOUR
     Dosage: 150 MG/M2 MILLIGRAM(S)/SQ.METER, DAY 1 - EVERY 14 DAYS, INTRAVENOUS (NOT OTHERWISE SPECIFIED)
  3. CISPLATIN [Suspect]
     Indication: GESTATIONAL TROPHOBLASTIC TUMOUR
     Dosage: 75 MG/M2 MILLIGRAM(S)/SQ.METER, DAY 1 - EVERY 14 DAYS, INTRAVENOUS (NOT OTHERWISE SPECIFIED)
  4. METHOTREXATE [Suspect]
     Indication: GESTATIONAL TROPHOBLASTIC TUMOUR
     Dosage: 300 MG/M2 MILLIGRAM(S)/SQ.METER, DAY 8 - EVERY 14 DAYS, INTRAVENOUS (NOT OTHERWISE SPECIFIED)

REACTIONS (1)
  - Ototoxicity [None]
